FAERS Safety Report 8812766 (Version 1)
Quarter: 2012Q4

REPORT INFORMATION
  Report Type: 
  Country: DE (occurrence: DE)
  Receive Date: 20120927
  Receipt Date: 20120927
  Transmission Date: 20130627
  Serious: Yes (Death, Life-Threatening)
  Sender: FDA-Public Use
  Company Number: DE-WATSON-2012-16369

PATIENT
  Age: 79 Year
  Sex: Female

DRUGS (8)
  1. METFORMIN HYDROCHLORIDE [Suspect]
     Indication: TYPE 2 DIABETES MELLITUS
     Dosage: ^daily dose: 1700 Mg milligram(s) every Day^ { 850 Mg milligram(s), 2 in 1 Day }
     Route: 048
  2. ASS [Concomitant]
     Indication: PRODUCT USED FOR UNKNOWN INDICATION
     Dosage: daily dose: 1 Df dosage form every Day
     Route: 065
  3. METOPROLOL [Concomitant]
     Indication: PRODUCT USED FOR UNKNOWN INDICATION
     Dosage: daily dose: 1 Df dosage form every Day
     Route: 065
  4. CYTOBION [Concomitant]
     Indication: PRODUCT USED FOR UNKNOWN INDICATION
     Dosage: 1Month
     Route: 058
  5. KEPPRA [Concomitant]
     Indication: PRODUCT USED FOR UNKNOWN INDICATION
     Dosage: daily dose: 2 Df dosage form every Day
     Route: 065
  6. NOVALGIN                           /06276704/ [Concomitant]
     Indication: PRODUCT USED FOR UNKNOWN INDICATION
     Dosage: daily dose: 120 Gtt drop(s) every Day
     Route: 065
  7. FURO                               /00032601/ [Concomitant]
     Indication: PRODUCT USED FOR UNKNOWN INDICATION
     Dosage: daily dose: 3 Df dosage form every Day
     Route: 065
  8. TRAMAL [Concomitant]
     Indication: PRODUCT USED FOR UNKNOWN INDICATION
     Dosage: daily dose: 1 Df dosage form everyDay
     Route: 065

REACTIONS (2)
  - Lactic acidosis [Fatal]
  - Renal failure acute [Fatal]
